FAERS Safety Report 5374629-0 (Version None)
Quarter: 2007Q2

REPORT INFORMATION
  Report Type: 
  Country: None (occurrence: None)
  Receive Date: 20070627
  Receipt Date: 20070413
  Transmission Date: 20071010
  Serious: Yes (Hospitalization)
  Sender: FDA-Public Use
  Company Number: 492798

PATIENT
  Age: 82 Year
  Sex: Female

DRUGS (4)
  1. XELODA [Suspect]
     Indication: COLON CANCER
     Dosage: 6 DOSES FORM DAILY ORAL
     Route: 048
     Dates: start: 20070106, end: 20070313
  2. UNSPECIFIED MEDICATION [Concomitant]
  3. LOVASTATIN [Concomitant]
  4. VITAMINS NOS [Concomitant]

REACTIONS (1)
  - DIARRHOEA [None]
